FAERS Safety Report 5609802-7 (Version None)
Quarter: 2008Q1

REPORT INFORMATION
  Report Type: 
  Country: None (occurrence: None)
  Receive Date: 20080131
  Receipt Date: 20071217
  Transmission Date: 20080703
  Serious: No
  Sender: FDA-Public Use
  Company Number: US-BAYER-200714246BCC

PATIENT
  Age: 53 Year
  Sex: Female

DRUGS (3)
  1. ALEVE [Suspect]
     Indication: MUSCLE STRAIN
     Dosage: TOTAL DAILY DOSE: 440 MG  UNIT DOSE: 220 MG
     Route: 048
     Dates: start: 20070201, end: 20070301
  2. TRIAMTERENE AND HYDROCHLOROTHIAZIDE [Concomitant]
  3. COPAXONE [Concomitant]

REACTIONS (1)
  - MUSCLE STRAIN [None]
